FAERS Safety Report 14305859 (Version 1)
Quarter: 2017Q4

REPORT INFORMATION
  Report Type: Spontaneous
  Country: US (occurrence: US)
  Receive Date: 20171219
  Receipt Date: 20171219
  Transmission Date: 20180321
  Serious: Yes (Other)
  Sender: FDA-Public Use
  Company Number: US-BIOMARINAP-US-2017-116442

PATIENT
  Age: 28 Year
  Sex: Female

DRUGS (1)
  1. ALDURAZYME [Suspect]
     Active Substance: LARONIDASE
     Indication: MUCOPOLYSACCHARIDOSIS I
     Dosage: UNK
     Route: 041
     Dates: start: 2000

REACTIONS (3)
  - Cardiac failure [Not Recovered/Not Resolved]
  - Disease progression [Not Recovered/Not Resolved]
  - Gait inability [Not Recovered/Not Resolved]
